FAERS Safety Report 8581142-6 (Version None)
Quarter: 2012Q3

REPORT INFORMATION
  Report Type: 
  Country: None (occurrence: None)
  Receive Date: 20120809
  Receipt Date: 20120731
  Transmission Date: 20120928
  Serious: Yes (Hospitalization)
  Sender: FDA-Public Use
  Company Number: FR-JNJFOC-20120803694

PATIENT
  Sex: Female
  Weight: 75 kg

DRUGS (7)
  1. XARELTO [Suspect]
     Indication: THROMBOSIS PROPHYLAXIS
     Route: 048
     Dates: start: 20120622, end: 20120629
  2. LEVOTHYROXINE SODIUM [Concomitant]
  3. TRAMADOL HCL [Concomitant]
     Indication: PAIN
     Route: 048
     Dates: end: 20120626
  4. FERROUS FUMARATE [Concomitant]
  5. XARELTO [Suspect]
     Indication: HIP ARTHROPLASTY
     Route: 048
     Dates: start: 20120622, end: 20120629
  6. RABEPRAZOLE SODIUM [Concomitant]
     Dates: start: 20120627
  7. ACETAMINOPHEN [Concomitant]

REACTIONS (7)
  - NAUSEA [None]
  - VOMITING [None]
  - ABDOMINAL PAIN [None]
  - DECREASED APPETITE [None]
  - VERTIGO [None]
  - HYPERHIDROSIS [None]
  - MALAISE [None]
